FAERS Safety Report 25871694 (Version 1)
Quarter: 2025Q4

REPORT INFORMATION
  Report Type: Spontaneous
  Country: US (occurrence: US)
  Receive Date: 20251001
  Receipt Date: 20251001
  Transmission Date: 20260118
  Serious: Yes (Life-Threatening, Hospitalization)
  Sender: AMGEN
  Company Number: US-AMGEN-USASP2025194459

PATIENT
  Age: 75 Year
  Sex: Female

DRUGS (10)
  1. PREDNISONE [Suspect]
     Active Substance: PREDNISONE
     Indication: Myocarditis-myositis-myasthenia gravis overlap syndrome
     Dosage: 1 MILLIGRAM/KILOGRAM, QD, ON DAY 4
     Route: 048
  2. PREDNISONE [Suspect]
     Active Substance: PREDNISONE
     Dosage: 1.5 MILLIGRAM/KILOGRAM, QD
     Route: 048
  3. CARBOPLATIN [Concomitant]
     Active Substance: CARBOPLATIN
  4. PACLITAXEL [Concomitant]
     Active Substance: PACLITAXEL
  5. DOSTARLIMAB [Concomitant]
     Active Substance: DOSTARLIMAB
  6. METHYLPREDNISOLONE [Concomitant]
     Active Substance: METHYLPREDNISOLONE
     Dosage: 1 GRAM, QD, FOR 3 DAYS
     Route: 040
  7. MYCOPHENOLATE MOFETIL [Concomitant]
     Active Substance: MYCOPHENOLATE MOFETIL
     Dosage: 1 GRAM, BID
  8. MYCOPHENOLATE MOFETIL [Concomitant]
     Active Substance: MYCOPHENOLATE MOFETIL
     Dosage: 1.5 GRAM, BID
  9. ABATACEPT [Concomitant]
     Active Substance: ABATACEPT
     Dosage: 10 MILLIGRAM/KILOGRAM, SINGLE DOSE
     Route: 040
  10. Immunoglobulin [Concomitant]
     Dosage: 0.4 GRAM PER KILOGRAM, QD, FOR FIVE CONSECUTIVE DAYS
     Route: 040

REACTIONS (4)
  - Troponin increased [Recovering/Resolving]
  - General physical health deterioration [Recovering/Resolving]
  - Acute respiratory failure [Recovering/Resolving]
  - Respiratory symptom [Recovering/Resolving]
